FAERS Safety Report 4779809-0 (Version None)
Quarter: 2005Q3

REPORT INFORMATION
  Report Type: 
  Country: None (occurrence: None)
  Receive Date: 20050927
  Receipt Date: 20050919
  Transmission Date: 20060218
  Serious: Yes (Hospitalization)
  Sender: FDA-Public Use
  Company Number: US-JNJFOC-20050905074

PATIENT
  Age: 80 Year
  Sex: Female
  Weight: 74.84 kg

DRUGS (1)
  1. FENTANYL [Suspect]
     Route: 062
     Dates: start: 20050301

REACTIONS (2)
  - ARTHRITIS [None]
  - WEIGHT DECREASED [None]
